FAERS Safety Report 12836889 (Version 1)
Quarter: 2016Q4

REPORT INFORMATION
  Report Type: Spontaneous
  Country: FR (occurrence: FR)
  Receive Date: 20161011
  Receipt Date: 20161011
  Transmission Date: 20170207
  Serious: Yes (Hospitalization)
  Sender: FDA-Public Use
  Company Number: FR-TEVA-697578ROM

PATIENT
  Age: 55 Year
  Sex: Female

DRUGS (5)
  1. CLINDAMYCINE BASE [Suspect]
     Active Substance: CLINDAMYCIN HYDROCHLORIDE
     Indication: HYGROMA COLLI
     Dosage: 1800 MILLIGRAM DAILY;
     Dates: start: 20160826
  2. PARACETAMOL [Suspect]
     Active Substance: ACETAMINOPHEN
     Indication: HYGROMA COLLI
     Route: 065
     Dates: start: 20160826
  3. ESTIMA 100 MG [Suspect]
     Active Substance: PROGESTERONE
     Indication: MENOPAUSE
     Dosage: 1 DOSAGE FORMS DAILY;
     Dates: start: 201607, end: 20160903
  4. SOLUPRED 20 MG [Suspect]
     Active Substance: PREDNISOLONE
     Indication: HYGROMA COLLI
     Dosage: 80 MILLIGRAM DAILY;
     Route: 048
     Dates: start: 20160821
  5. ESTREVA 0.1% [Suspect]
     Active Substance: ESTRADIOL
     Indication: MENOPAUSE
     Dates: start: 201607, end: 20160903

REACTIONS (1)
  - Brief psychotic disorder with marked stressors [Unknown]

NARRATIVE: CASE EVENT DATE: 20160903
